FAERS Safety Report 9617827 (Version 1)
Quarter: 2013Q4

REPORT INFORMATION
  Report Type: Other
  Country: DE (occurrence: DE)
  Receive Date: 20131011
  Receipt Date: 20131011
  Transmission Date: 20140711
  Serious: Yes (Hospitalization)
  Sender: FDA-Public Use
  Company Number: DE-BRISTOL-MYERS SQUIBB COMPANY-19490531

PATIENT
  Age: 62 Year
  Sex: Female

DRUGS (8)
  1. IPILIMUMAB [Suspect]
     Indication: MALIGNANT MELANOMA STAGE IV
  2. HYDROMORPHONE [Suspect]
  3. FLUOXETINE [Concomitant]
  4. PANTOPRAZOLE [Concomitant]
  5. PREGABALIN [Concomitant]
  6. TEMAZEPAM [Concomitant]
  7. NOVAMINSULFON [Concomitant]
  8. LACTULOSE [Concomitant]

REACTIONS (2)
  - Ileus paralytic [Recovered/Resolved]
  - Enterobacter sepsis [Recovered/Resolved]
